FAERS Safety Report 5170464-7 (Version None)
Quarter: 2006Q4

REPORT INFORMATION
  Report Type: 
  Country: None (occurrence: None)
  Receive Date: 20061205
  Receipt Date: 20061124
  Transmission Date: 20070319
  Serious: Yes (Other)
  Sender: FDA-Public Use
  Company Number: 2006140574

PATIENT
  Age: 37 Year
  Sex: Female

DRUGS (3)
  1. LYRICA [Suspect]
     Indication: ANXIETY
     Dosage: 300 MG (100 MG, 3 IN 1 D), ORAL
     Route: 048
     Dates: start: 20060901
  2. MOLIPAXIN          (TRAZODONE HYDROCHLORIDE) [Concomitant]
  3. TRAZODONE HCL [Concomitant]

REACTIONS (2)
  - ASTHMA [None]
  - UPPER RESPIRATORY TRACT INFECTION [None]
